FAERS Safety Report 24214379 (Version 1)
Quarter: 2024Q3

REPORT INFORMATION
  Report Type: Spontaneous
  Country: IN (occurrence: IN)
  Receive Date: 20240815
  Receipt Date: 20240815
  Transmission Date: 20241017
  Serious: Yes (Other)
  Sender: BAYER
  Company Number: IN-BAYER-2024A117437

PATIENT
  Age: 75 Year
  Sex: Male

DRUGS (1)
  1. DAROLUTAMIDE [Suspect]
     Active Substance: DAROLUTAMIDE
     Indication: Prostate cancer metastatic
     Dosage: UNK

REACTIONS (1)
  - Deep vein thrombosis [None]
